FAERS Safety Report 6910429-5 (Version None)
Quarter: 2010Q3

REPORT INFORMATION
  Report Type: 
  Country: None (occurrence: None)
  Receive Date: 20100806
  Receipt Date: 20100726
  Transmission Date: 20110219
  Serious: Yes (Other)
  Sender: FDA-Public Use
  Company Number: JP-PFIZER INC-2010092943

PATIENT
  Age: 54 Year
  Sex: Male
  Weight: 72 kg

DRUGS (17)
  1. SUNITINIB MALATE [Suspect]
     Indication: RENAL CELL CARCINOMA
     Dosage: 50 MG, 1X/DAY
     Route: 048
     Dates: start: 20090403
  2. NELBON [Concomitant]
     Dosage: 1 DF, AS NEEDED
     Route: 048
  3. CLONAZEPAM [Concomitant]
     Dosage: 2 DF, 1X/DAY
     Route: 048
  4. ARTIST [Concomitant]
     Dosage: 1 DF, 1X/DAY
     Route: 048
  5. ADALAT CC [Concomitant]
     Dosage: 1 DF, 2X/DAY
     Route: 048
     Dates: start: 20090401
  6. RENAGEL [Concomitant]
     Dosage: 8 DF, 3X/DAY
     Route: 048
  7. TAKEPRON [Concomitant]
     Dosage: 1 DF, 1X/DAY
     Route: 048
  8. TANKARU [Concomitant]
     Dosage: 4 DF, 3X/DAY
     Route: 048
  9. SENEVACUL [Concomitant]
     Dosage: 3 (UNKNOWN UNITS), 1XDAY
     Route: 048
  10. NAUZELIN [Concomitant]
     Dosage: 1 (UNKNOWN UNITS), 3X/DAY
     Route: 048
  11. ERSIBON [Concomitant]
     Dosage: 1 (UNKNOWN UNITS) 1X/DAY
     Route: 048
  12. ALESION [Concomitant]
     Dosage: 1(UNKNOWN UNITS) 1X/DAY
     Route: 048
  13. RISUMIC [Concomitant]
     Dosage: 1 (UNKNOWN UNITS), 2X/DAY
  14. SELBEX [Concomitant]
     Dosage: 1 (UNKNOWN UNITS), 2X/DAY
     Route: 048
  15. CALONAL [Concomitant]
     Dosage: 1 (UNKNOWN UNITS), AS NEEDED
     Route: 048
  16. SALICYLAMIDE [Concomitant]
     Dosage: 1 (UNKNOWN UNITS),  2X/DAY
     Route: 048
     Dates: start: 20090406
  17. ASPIRIN [Concomitant]
     Dosage: 1(UNKNOWN UNITS), 1X/DAY
     Route: 048
     Dates: end: 20090614

REACTIONS (1)
  - GASTROINTESTINAL HAEMORRHAGE [None]
